FAERS Safety Report 21914997 (Version 1)
Quarter: 2023Q1

REPORT INFORMATION
  Report Type: Spontaneous
  Country: US (occurrence: US)
  Receive Date: 20230126
  Receipt Date: 20230126
  Transmission Date: 20230418
  Serious: No
  Sender: FDA-Public Use
  Company Number: US-CATALYST PHARMACEUTICALS, INC-2022CAT00570

PATIENT
  Age: 21 Year
  Sex: Female
  Weight: 79.365 kg

DRUGS (13)
  1. FIRDAPSE [Suspect]
     Active Substance: AMIFAMPRIDINE PHOSPHATE
     Indication: Myasthenic syndrome
     Dosage: TITRATING UP TO 8 TABLETS (80 MG) DAILY
     Route: 048
  2. FIRDAPSE [Suspect]
     Active Substance: AMIFAMPRIDINE PHOSPHATE
     Dosage: 20 MG, 4X/DAY
     Route: 048
  3. FIRDAPSE [Suspect]
     Active Substance: AMIFAMPRIDINE PHOSPHATE
     Dosage: 5.5 TABLETS (55 MG) DAILY IN DIVIDED DOSES; TITRATING UP TO 8 TABLETS (80 MG) DAILY
     Route: 048
  4. ZYRTEC [Suspect]
     Active Substance: CETIRIZINE HYDROCHLORIDE
     Indication: Hypersensitivity
     Dosage: 10 MG, 1X/DAY
     Dates: start: 2019
  5. ALPHA GLYCOSYL ISOQUERCITRIN [Concomitant]
     Dosage: UNK, 1X/DAY
  6. CROMOLYN [Concomitant]
     Active Substance: CROMOLYN
     Dosage: UNK, 3X/DAY
  7. FERROUS SULFATE [Concomitant]
     Active Substance: FERROUS SULFATE
     Dosage: UNK, 1X/DAY
  8. INOSITOL [Concomitant]
     Active Substance: INOSITOL
     Dosage: 500 MG, 1X/DAY
  9. HERBALS\TURMERIC [Concomitant]
     Active Substance: HERBALS\TURMERIC
     Dosage: 500 MG, 1X/DAY
  10. VITAMIN B12 [Concomitant]
     Active Substance: CYANOCOBALAMIN
     Dosage: 500 ?G, 1X/DAY
  11. VITAMIN D3 [Concomitant]
     Active Substance: CHOLECALCIFEROL
     Dosage: 25 ?G, 1X/DAY
  12. ZINC [Concomitant]
     Active Substance: ZINC
     Dosage: 50 MG, 1X/DAY
  13. VITEX [Concomitant]
     Dosage: 1 CAPSULE, 1X/DAY

REACTIONS (6)
  - COVID-19 [Not Recovered/Not Resolved]
  - Drug ineffective [Not Recovered/Not Resolved]
  - Hypersensitivity [Not Recovered/Not Resolved]
  - Sneezing [Not Recovered/Not Resolved]
  - Rhinorrhoea [Not Recovered/Not Resolved]
  - Asthenia [Not Recovered/Not Resolved]

NARRATIVE: CASE EVENT DATE: 20220803
